FAERS Safety Report 20937038 (Version 1)
Quarter: 2022Q2

REPORT INFORMATION
  Report Type: Spontaneous
  Country: US (occurrence: None)
  Receive Date: 20220609
  Receipt Date: 20220609
  Transmission Date: 20220721
  Serious: No
  Sender: FDA-Public Use
  Company Number: US-ROCHE-2928356

PATIENT
  Sex: Female
  Weight: 20.430 kg

DRUGS (2)
  1. ACTEMRA [Suspect]
     Active Substance: TOCILIZUMAB
     Indication: Rheumatoid arthritis
     Dosage: ONE SHOT EVERY TWO WEEKS
     Route: 058
     Dates: start: 202001
  2. FLUCINONIDE [Concomitant]
     Indication: Skin ulcer
     Dosage: TWICE A DAY

REACTIONS (2)
  - Stomatitis [Unknown]
  - Cheilitis [Unknown]
